FAERS Safety Report 22603339 (Version 1)
Quarter: 2023Q2

REPORT INFORMATION
  Report Type: Spontaneous
  Country: US (occurrence: US)
  Receive Date: 20230615
  Receipt Date: 20230615
  Transmission Date: 20230721
  Serious: Yes (Other)
  Sender: FDA-Public Use
  Company Number: US-CADILA HEALTHCARE LIMITED-US-ZYDUS-094297

PATIENT

DRUGS (15)
  1. VERAPAMIL [Suspect]
     Active Substance: VERAPAMIL HYDROCHLORIDE
     Indication: Torsade de pointes
     Dosage: UNK
     Route: 065
  2. RANOLAZINE [Suspect]
     Active Substance: RANOLAZINE
     Indication: Torsade de pointes
     Dosage: UNK,EVERY 6 H
     Route: 065
  3. RANOLAZINE [Suspect]
     Active Substance: RANOLAZINE
     Dosage: UNK,EVERY 4 H
     Route: 065
  4. PROPRANOLOL [Suspect]
     Active Substance: PROPRANOLOL HYDROCHLORIDE
     Indication: Torsade de pointes
     Dosage: 0.8 MILLIGRAM/KILOGRAM, TID
     Route: 065
  5. MEXILETINE HYDROCHLORIDE [Suspect]
     Active Substance: MEXILETINE HYDROCHLORIDE
     Indication: Torsade de pointes
     Dosage: UNK, EVERY 8 H
     Route: 065
  6. ISOPROTERENOL HYDROCHLORIDE [Concomitant]
     Active Substance: ISOPROTERENOL HYDROCHLORIDE
     Indication: Torsade de pointes
     Dosage: UNK
     Route: 065
  7. MAGNESIUM [Concomitant]
     Active Substance: MAGNESIUM
     Indication: Torsade de pointes
     Dosage: UNK
     Route: 065
  8. FLECAINIDE [Concomitant]
     Active Substance: FLECAINIDE
     Indication: Torsade de pointes
     Dosage: UNK
     Route: 065
  9. FOSPHENYTOIN [Concomitant]
     Active Substance: FOSPHENYTOIN
     Indication: Torsade de pointes
     Dosage: UNK, 10 MG PHENYTOIN EQUIVALENT (PE) PER KG
  10. FOSPHENYTOIN [Concomitant]
     Active Substance: FOSPHENYTOIN
     Dosage: 4 MILLIGRAM/KILOGRAM, TID
  11. FOSPHENYTOIN [Concomitant]
     Active Substance: FOSPHENYTOIN
     Dosage: 4MG PE/KG/DOSE THREE TIMES DAILY.
     Route: 048
  12. PHENYTOIN [Concomitant]
     Active Substance: PHENYTOIN
     Indication: Arrhythmic storm
     Dosage: 4 MILLIGRAM/KILOGRAM, TID
     Route: 048
  13. PHENYTOIN [Concomitant]
     Active Substance: PHENYTOIN
     Indication: Torsade de pointes
     Dosage: 2.7 MILLIGRAM/KILOGRAM, TID
     Route: 048
  14. DILTIAZEM [Concomitant]
     Active Substance: DILTIAZEM
     Indication: Torsade de pointes
     Dosage: UNK
     Route: 065
  15. FOLIC ACID [Concomitant]
     Active Substance: FOLIC ACID
     Indication: Product used for unknown indication
     Dosage: UNK
     Route: 065

REACTIONS (2)
  - Arrhythmic storm [Unknown]
  - Drug ineffective [Unknown]
